FAERS Safety Report 14718610 (Version 1)
Quarter: 2018Q2

REPORT INFORMATION
  Report Type: Spontaneous
  Country: GB (occurrence: GB)
  Receive Date: 20180405
  Receipt Date: 20180405
  Transmission Date: 20180711
  Serious: Yes (Other)
  Sender: FDA-Public Use
  Company Number: GB-TEVA-2018-GB-877840

PATIENT
  Age: 25 Year
  Sex: Female
  Weight: 75 kg

DRUGS (2)
  1. ESCITALOPRAM [Suspect]
     Active Substance: ESCITALOPRAM OXALATE
     Route: 048
     Dates: start: 20180122
  2. LEVONELLE [Concomitant]
     Active Substance: LEVONORGESTREL
     Route: 065

REACTIONS (4)
  - Arthralgia [Unknown]
  - Bursitis [Not Recovered/Not Resolved]
  - Skin warm [Unknown]
  - Nasopharyngitis [Recovered/Resolved]

NARRATIVE: CASE EVENT DATE: 20180125
